FAERS Safety Report 5704776-2 (Version None)
Quarter: 2008Q2

REPORT INFORMATION
  Report Type: 
  Country: None (occurrence: None)
  Receive Date: 20080414
  Receipt Date: 20080404
  Transmission Date: 20081010
  Serious: Yes (Death)
  Sender: FDA-Public Use
  Company Number: BE-ABBOTT-08P-013-0443167-00

PATIENT
  Sex: Male

DRUGS (5)
  1. KALETRA [Suspect]
     Indication: HIV INFECTION
     Dates: start: 20070907, end: 20071126
  2. TENOFOVIR DISOPROXIL FUMARATE [Concomitant]
     Indication: HIV INFECTION
     Dates: start: 20070907
  3. EMTRICITABINE [Concomitant]
     Indication: HIV INFECTION
     Dates: start: 20070907
  4. ATAZANAVIR SULFATE [Concomitant]
     Indication: HIV INFECTION
     Dates: start: 20071127
  5. RITONAVIR [Concomitant]
     Indication: HIV INFECTION
     Dates: start: 20071127

REACTIONS (2)
  - MALIGNANT ANORECTAL NEOPLASM [None]
  - SQUAMOUS CELL CARCINOMA [None]
